FAERS Safety Report 6252198-0 (Version None)
Quarter: 2009Q2

REPORT INFORMATION
  Report Type: 
  Country: None (occurrence: None)
  Receive Date: 20090629
  Receipt Date: 20090618
  Transmission Date: 20091009
  Serious: Yes (Hospitalization)
  Sender: FDA-Public Use
  Company Number: 2008JP003576

PATIENT
  Age: 70 Year
  Sex: Male
  Weight: 168 kg

DRUGS (6)
  1. VESICARE [Suspect]
     Indication: HYPERTONIC BLADDER
     Dosage: 5 MG, UID/QD, ORAL, 7.5 MG, UID/QD, ORAL
     Route: 048
     Dates: start: 20070604, end: 20080605
  2. VESICARE [Suspect]
     Indication: HYPERTONIC BLADDER
     Dosage: 5 MG, UID/QD, ORAL, 7.5 MG, UID/QD, ORAL
     Route: 048
     Dates: start: 20080606
  3. LASIX [Concomitant]
  4. CEPHARANTHIN (CEPHARANTHINE) POWDER [Concomitant]
  5. SAIBOKU-TO (HERBAL EXTRACT NOS) [Concomitant]
  6. RHYTHMY (RILMAZAFONE HYDROCHLORIDE) [Concomitant]

REACTIONS (2)
  - ASTEATOSIS [None]
  - INTERSTITIAL LUNG DISEASE [None]
